FAERS Safety Report 10181417 (Version 1)
Quarter: 2014Q2

REPORT INFORMATION
  Report Type: Spontaneous
  Country: CA (occurrence: CA)
  Receive Date: 20140519
  Receipt Date: 20140519
  Transmission Date: 20141212
  Serious: Yes (Other)
  Sender: FDA-Public Use
  Company Number: CA-009507513-1405CAN007616

PATIENT
  Age: 56 Year
  Sex: Female

DRUGS (3)
  1. VICTRELIS [Suspect]
     Dosage: UNK
     Route: 065
  2. RIBAVIRIN [Suspect]
     Dosage: 1400 MG QD
     Route: 048
  3. PEGASYS [Suspect]
     Dosage: 180 MG, QW
     Route: 058

REACTIONS (2)
  - Myocardial infarction [Unknown]
  - Malaise [Unknown]
